FAERS Safety Report 4551129-9 (Version None)
Quarter: 2005Q1

REPORT INFORMATION
  Report Type: 
  Country: None (occurrence: None)
  Receive Date: 20050107
  Receipt Date: 20041229
  Transmission Date: 20050727
  Serious: No
  Sender: FDA-Public Use
  Company Number: S04-USA-05530-01

PATIENT
  Age: 18 Year
  Sex: Female
  Weight: 98.4306 kg

DRUGS (2)
  1. LEXAPRO [Suspect]
     Indication: BIPOLAR DISORDER
     Dosage: 20 MG QD PO
     Route: 048
     Dates: start: 20030601, end: 20040401
  2. LEXAPRO [Suspect]
     Indication: BIPOLAR DISORDER
     Dosage: 20 MG QD PO
     Route: 048
     Dates: start: 20041220

REACTIONS (5)
  - CHOLELITHIASIS [None]
  - DRUG EXPOSURE DURING PREGNANCY [None]
  - FALSE LABOUR [None]
  - INDUCED LABOUR [None]
  - PREGNANCY [None]
